FAERS Safety Report 7568275-8 (Version None)
Quarter: 2011Q2

REPORT INFORMATION
  Report Type: 
  Country: None (occurrence: None)
  Receive Date: 20110623
  Receipt Date: 20110406
  Transmission Date: 20111010
  Serious: Yes (Other)
  Sender: FDA-Public Use
  Company Number: DE-ROCHE-770631

PATIENT
  Sex: Female
  Weight: 60 kg

DRUGS (3)
  1. CALVIT [Suspect]
     Indication: OSTEOPOROSIS
     Route: 048
     Dates: start: 20100930
  2. CHOLECALCIFEROL [Suspect]
     Indication: OSTEOPOROSIS
     Route: 048
     Dates: start: 20100930
  3. IBANDRONATE SODIUM [Suspect]
     Indication: OSTEOPOROSIS
     Dosage: ONCE QUARTERLY.
     Route: 042
     Dates: start: 20100930, end: 20101230

REACTIONS (1)
  - SUPRAVENTRICULAR TACHYCARDIA [None]
